FAERS Safety Report 10106696 (Version 2)
Quarter: 2014Q3

REPORT INFORMATION
  Report Type: Other
  Country: US (occurrence: US)
  Receive Date: 20140424
  Receipt Date: 20140729
  Transmission Date: 20150326
  Serious: Yes (Death, Hospitalization, Other)
  Sender: FDA-Public Use
  Company Number: US-GSKPPD-2014GSK001712

PATIENT
  Age: 66 Year
  Sex: Male

DRUGS (2)
  1. NITRO-BID [Concomitant]
     Active Substance: NITROGLYCERIN
     Route: 061
     Dates: start: 20050717
  2. AVANDIA [Suspect]
     Active Substance: ROSIGLITAZONE MALEATE
     Indication: DIABETES MELLITUS
     Route: 048
     Dates: start: 20020103

REACTIONS (3)
  - Myocardial infarction [None]
  - Haemorrhage intracranial [Fatal]
  - Coronary artery disease [None]

NARRATIVE: CASE EVENT DATE: 20050716
